FAERS Safety Report 9316172 (Version 1)
Quarter: 2013Q2

REPORT INFORMATION
  Report Type: Report from Study
  Country: US (occurrence: US)
  Receive Date: 20130530
  Receipt Date: 20130530
  Transmission Date: 20140414
  Serious: Yes (Death, Hospitalization)
  Sender: FDA-Public Use
  Company Number: US-PFIZER INC-2013148382

PATIENT
  Age: 50 Year
  Sex: Female
  Weight: 57.15 kg

DRUGS (13)
  1. BLINDED CELECOXIB [Suspect]
     Indication: NON-SMALL CELL LUNG CANCER
     Dosage: 400MG, 2X/DAY, EVERY DAY
     Route: 048
     Dates: start: 20130311, end: 201304
  2. BLINDED PLACEBO [Suspect]
     Indication: NON-SMALL CELL LUNG CANCER
     Dosage: 400MG, 2X/DAY, EVERY DAY
     Route: 048
     Dates: start: 20130311, end: 201304
  3. CARBOPLATIN [Suspect]
     Indication: NON-SMALL CELL LUNG CANCER
     Dosage: AUC= 5 OR 5.5 ON DAY 1, EVERY 21 DAYS
     Route: 042
     Dates: start: 20130311, end: 20130423
  4. GEMCITABINE HYDROCHLORIDE [Suspect]
     Indication: NON-SMALL CELL LUNG CANCER
     Dosage: 1000 MG/M2 ON DAYS 1 AND 8, EVERY 21 DAYS
     Route: 042
     Dates: start: 20130311, end: 20130423
  5. DEXAMETHASONE [Concomitant]
  6. EMLA CREAM [Concomitant]
  7. MARINOL [Concomitant]
  8. OXICODONE [Concomitant]
  9. PRILOSEC [Concomitant]
  10. ROXICODONE [Concomitant]
  11. ZOCOR [Concomitant]
  12. ZOFRAN [Concomitant]
  13. ZOLOFT [Concomitant]

REACTIONS (3)
  - Cardiac arrest [Recovered/Resolved with Sequelae]
  - Anaemia [Not Recovered/Not Resolved]
  - Death [Fatal]
